FAERS Safety Report 4941300-6 (Version None)
Quarter: 2006Q1

REPORT INFORMATION
  Report Type: 
  Country: None (occurrence: None)
  Receive Date: 20060313
  Receipt Date: 20051004
  Transmission Date: 20060701
  Serious: Yes (Hospitalization)
  Sender: FDA-Public Use
  Company Number: US-MERCK-0510USA03551

PATIENT
  Age: 75 Year
  Sex: Female
  Weight: 90 kg

DRUGS (3)
  1. VIOXX [Suspect]
     Indication: RHEUMATOID ARTHRITIS
     Route: 048
     Dates: start: 20020101
  2. TOPROL-XL [Concomitant]
     Route: 065
  3. NEXIUM [Concomitant]
     Route: 065

REACTIONS (11)
  - ACTINIC KERATOSIS [None]
  - ANGINA UNSTABLE [None]
  - BLOOD POTASSIUM DECREASED [None]
  - CARDIOVASCULAR DISORDER [None]
  - CORONARY ARTERY DISEASE [None]
  - DIVERTICULUM [None]
  - GASTROINTESTINAL PAIN [None]
  - HAEMORRHOIDAL HAEMORRHAGE [None]
  - MYOCARDIAL INFARCTION [None]
  - RECTAL PROLAPSE [None]
  - THROMBOSIS [None]
